FAERS Safety Report 24558699 (Version 3)
Quarter: 2024Q4

REPORT INFORMATION
  Report Type: Spontaneous
  Country: US (occurrence: US)
  Receive Date: 20241029
  Receipt Date: 20241122
  Transmission Date: 20250115
  Serious: No
  Sender: ROCHE
  Company Number: US-ROCHE-10000112550

PATIENT
  Age: 43 Year
  Sex: Female

DRUGS (2)
  1. VABYSMO [Suspect]
     Active Substance: FARICIMAB-SVOA
     Indication: Diabetic retinal oedema
     Dosage: 2 INJECTIONS PRIOR TO EVENT?(FREQUENCY: EVERY 4 WEEKS- EVERY 8 WEEKS)
     Route: 065
     Dates: start: 20231229, end: 20240308
  2. AVASTIN [Suspect]
     Active Substance: BEVACIZUMAB
     Indication: Diabetic retinal oedema
     Route: 065

REACTIONS (3)
  - Retinal vasculitis [Recovered/Resolved with Sequelae]
  - Off label use [Unknown]
  - Chorioretinitis [Recovered/Resolved with Sequelae]

NARRATIVE: CASE EVENT DATE: 20240308
